FAERS Safety Report 6348846-7 (Version None)
Quarter: 2009Q3

REPORT INFORMATION
  Report Type: 
  Country: None (occurrence: None)
  Receive Date: 20090904
  Receipt Date: 20090820
  Transmission Date: 20100115
  Serious: Yes (Hospitalization)
  Sender: FDA-Public Use
  Company Number: 2009US004612

PATIENT
  Age: 62 Year
  Sex: Female

DRUGS (1)
  1. ALOXI [Suspect]
     Indication: PROPHYLAXIS OF NAUSEA AND VOMITING
     Dosage: 0.25 MG, SINGLE, IV BOLUS
     Route: 040
     Dates: start: 20090801, end: 20090801

REACTIONS (3)
  - HYPOTONIA [None]
  - MYODESOPSIA [None]
  - SYNCOPE [None]
